FAERS Safety Report 22138663 (Version 3)
Quarter: 2023Q2

REPORT INFORMATION
  Report Type: Report from Study
  Country: JP (occurrence: JP)
  Receive Date: 20230326
  Receipt Date: 20230522
  Transmission Date: 20230722
  Serious: Yes (Other)
  Sender: FDA-Public Use
  Company Number: JP-CELLTRION INC.-2023JP006256

PATIENT

DRUGS (29)
  1. INVESTIGATIONAL BIOSIMILARS [Suspect]
     Active Substance: INVESTIGATIONAL BIOSIMILARS
     Indication: HER2 positive gastric cancer
     Dosage: 243 MG, QD
     Route: 041
     Dates: start: 20220428, end: 20220428
  2. INVESTIGATIONAL BIOSIMILARS [Suspect]
     Active Substance: INVESTIGATIONAL BIOSIMILARS
     Dosage: 247 MG, QD
     Route: 041
     Dates: start: 20220519, end: 20220519
  3. INVESTIGATIONAL BIOSIMILARS [Suspect]
     Active Substance: INVESTIGATIONAL BIOSIMILARS
     Dosage: 253 MG, QD
     Route: 041
     Dates: start: 20220609, end: 20220609
  4. INVESTIGATIONAL BIOSIMILARS [Suspect]
     Active Substance: INVESTIGATIONAL BIOSIMILARS
     Dosage: 255 MG, QD
     Route: 041
     Dates: start: 20220707, end: 20220707
  5. INVESTIGATIONAL BIOSIMILARS [Suspect]
     Active Substance: INVESTIGATIONAL BIOSIMILARS
     Dosage: 259 MG, QD
     Route: 041
     Dates: start: 20220728, end: 20220728
  6. INVESTIGATIONAL BIOSIMILARS [Suspect]
     Active Substance: INVESTIGATIONAL BIOSIMILARS
     Dosage: 267 MG, QD
     Route: 041
     Dates: start: 20220818, end: 20220818
  7. INVESTIGATIONAL BIOSIMILARS [Suspect]
     Active Substance: INVESTIGATIONAL BIOSIMILARS
     Dosage: 270 MG, QD
     Route: 041
     Dates: start: 20220908, end: 20220908
  8. INVESTIGATIONAL BIOSIMILARS [Suspect]
     Active Substance: INVESTIGATIONAL BIOSIMILARS
     Dosage: 268 MG, QD
     Route: 041
     Dates: start: 20220929, end: 20220929
  9. INVESTIGATIONAL BIOSIMILARS [Suspect]
     Active Substance: INVESTIGATIONAL BIOSIMILARS
     Dosage: 271 MG, QD
     Route: 041
     Dates: start: 20221020, end: 20221020
  10. INVESTIGATIONAL BIOSIMILARS [Suspect]
     Active Substance: INVESTIGATIONAL BIOSIMILARS
     Dosage: 269 MG, QD
     Route: 041
     Dates: start: 20221110, end: 20221110
  11. INVESTIGATIONAL BIOSIMILARS [Suspect]
     Active Substance: INVESTIGATIONAL BIOSIMILARS
     Dosage: 267 MG, QD
     Route: 041
     Dates: start: 20221201, end: 20221201
  12. INVESTIGATIONAL BIOSIMILARS [Suspect]
     Active Substance: INVESTIGATIONAL BIOSIMILARS
     Dosage: 270 MG, QD
     Route: 041
     Dates: start: 20221222, end: 20221222
  13. OXALIPLATIN [Suspect]
     Active Substance: OXALIPLATIN
     Indication: HER2 positive gastric cancer
     Dosage: 135 MG, QD
     Route: 041
     Dates: start: 20220428, end: 20220428
  14. OXALIPLATIN [Suspect]
     Active Substance: OXALIPLATIN
     Dosage: 136 MG, QD
     Route: 041
     Dates: start: 20220519, end: 20220519
  15. OXALIPLATIN [Suspect]
     Active Substance: OXALIPLATIN
     Dosage: 137 MG, QD
     Route: 041
     Dates: start: 20220609, end: 20220609
  16. OXALIPLATIN [Suspect]
     Active Substance: OXALIPLATIN
     Dosage: 103 MG, QD
     Route: 041
     Dates: start: 20220707, end: 20220707
  17. OXALIPLATIN [Suspect]
     Active Substance: OXALIPLATIN
     Dosage: 104 MG, QD
     Route: 041
     Dates: start: 20220728, end: 20220728
  18. OXALIPLATIN [Suspect]
     Active Substance: OXALIPLATIN
     Dosage: 105 MG, QD
     Route: 041
     Dates: start: 20220818, end: 20220818
  19. OXALIPLATIN [Suspect]
     Active Substance: OXALIPLATIN
     Dosage: 106 MG, QD
     Route: 041
     Dates: start: 20220908, end: 20220908
  20. OXALIPLATIN [Suspect]
     Active Substance: OXALIPLATIN
     Dosage: 105 MG, QD
     Route: 041
     Dates: start: 20220929, end: 20220929
  21. OXALIPLATIN [Suspect]
     Active Substance: OXALIPLATIN
     Dosage: 106 MG, QD
     Route: 041
     Dates: start: 20221020, end: 20221020
  22. OXALIPLATIN [Suspect]
     Active Substance: OXALIPLATIN
     Dosage: 106 MG, QD
     Route: 041
     Dates: start: 20221110, end: 20221110
  23. OXALIPLATIN [Suspect]
     Active Substance: OXALIPLATIN
     Dosage: 105 MG, QD
     Route: 041
     Dates: start: 20221201, end: 20221201
  24. OXALIPLATIN [Suspect]
     Active Substance: OXALIPLATIN
     Dosage: 106 MG, QD
     Route: 041
     Dates: start: 20221222, end: 20221222
  25. ACETAMINOPHEN [Concomitant]
     Active Substance: ACETAMINOPHEN
     Indication: Cancer pain
     Dosage: UNK
  26. FENTANYL [Concomitant]
     Active Substance: FENTANYL
     Indication: Cancer pain
     Dosage: UNK
     Dates: start: 20220118
  27. VONOPRAZAN FUMARATE [Concomitant]
     Active Substance: VONOPRAZAN FUMARATE
     Indication: Gastrooesophageal reflux disease
     Dosage: UNK
  28. GIMERACIL\OTERACIL\TEGAFUR [Concomitant]
     Active Substance: GIMERACIL\OTERACIL\OTERACIL POTASSIUM\TEGAFUR
     Indication: HER2 positive gastric cancer
     Dosage: UNK
     Route: 048
     Dates: start: 20220408, end: 20220512
  29. SODIUM FERROUS CITRATE [Concomitant]
     Active Substance: SODIUM FERROUS CITRATE
     Indication: Iron deficiency anaemia
     Dosage: UNK
     Dates: start: 20211223, end: 20220316

REACTIONS (3)
  - Venoocclusive liver disease [Not Recovered/Not Resolved]
  - Overdose [Unknown]
  - Inappropriate schedule of product administration [Unknown]

NARRATIVE: CASE EVENT DATE: 20230119
